FAERS Safety Report 6047084-5 (Version None)
Quarter: 2009Q1

REPORT INFORMATION
  Report Type: 
  Country: None (occurrence: None)
  Receive Date: 20090122
  Receipt Date: 20090119
  Transmission Date: 20090719
  Serious: Yes (Death, Life-Threatening)
  Sender: FDA-Public Use
  Company Number: JP-SANOFI-SYNTHELABO-F01200900055

PATIENT
  Sex: Male
  Weight: 90 kg

DRUGS (5)
  1. HEPARIN [Suspect]
     Indication: ACUTE MYOCARDIAL INFARCTION
     Dosage: 4000 UNIT
     Route: 042
     Dates: start: 20080827
  2. HEPARIN [Suspect]
     Dosage: 6000 UNIT
     Route: 042
     Dates: start: 20080827
  3. ASPIRIN [Suspect]
     Indication: ACUTE MYOCARDIAL INFARCTION
     Route: 048
     Dates: start: 20080827
  4. CLOPIDOGREL [Suspect]
     Dosage: STARTING DOSE 300 MG
     Route: 048
     Dates: start: 20080827, end: 20080827
  5. CLOPIDOGREL [Suspect]
     Dosage: MAINTENANCE DOSE
     Route: 048
     Dates: start: 20080828

REACTIONS (2)
  - ACUTE MYOCARDIAL INFARCTION [None]
  - PULMONARY ALVEOLAR HAEMORRHAGE [None]
